FAERS Safety Report 4673366-5 (Version None)
Quarter: 2005Q2

REPORT INFORMATION
  Report Type: 
  Country: None (occurrence: None)
  Receive Date: 20050525
  Receipt Date: 20010322
  Transmission Date: 20051028
  Serious: Yes (Other)
  Sender: FDA-Public Use
  Company Number: PHBS2004BR15316

PATIENT
  Age: 39 Year
  Sex: Female
  Weight: 59 kg

DRUGS (2)
  1. STARLIX [Suspect]
     Dosage: 120 MG/DAY
  2. STARLIX [Suspect]
     Dosage: REDUCED

REACTIONS (2)
  - DIARRHOEA HAEMORRHAGIC [None]
  - URTICARIA [None]
